FAERS Safety Report 6060956-0 (Version None)
Quarter: 2009Q1

REPORT INFORMATION
  Report Type: 
  Country: None (occurrence: None)
  Receive Date: 20090202
  Receipt Date: 20090121
  Transmission Date: 20090719
  Serious: Yes (Other)
  Sender: FDA-Public Use
  Company Number: US-ROCHE-603084

PATIENT
  Sex: Female
  Weight: 66.7 kg

DRUGS (8)
  1. BONIVA [Suspect]
     Indication: OSTEOPENIA
     Dosage: RECEIVED 2 DOSES
     Route: 048
     Dates: start: 20081030, end: 20081130
  2. PREMARIN [Concomitant]
     Indication: POSTMENOPAUSE
     Route: 048
     Dates: start: 19900101
  3. LEXAPRO [Concomitant]
     Indication: ANXIETY
     Dosage: DAILY
     Route: 048
     Dates: start: 20070101
  4. SYNTHROID [Concomitant]
     Indication: HYPOTHYROIDISM
     Dosage: DAILY
     Route: 048
     Dates: start: 20080101
  5. VITAMIN B COMPLEX CAP [Concomitant]
     Dosage: DAILY
  6. CALTRATE [Concomitant]
     Route: 065
  7. ASPIRIN [Concomitant]
  8. DIURETICS [Concomitant]
     Dosage: AS NEEDED

REACTIONS (3)
  - MUSCLE SPASMS [None]
  - MUSCULOSKELETAL PAIN [None]
  - OEDEMA PERIPHERAL [None]
